FAERS Safety Report 7704027-3 (Version None)
Quarter: 2011Q3

REPORT INFORMATION
  Report Type: 
  Country: None (occurrence: None)
  Receive Date: 20110823
  Receipt Date: 20110811
  Transmission Date: 20111222
  Serious: Yes (Other)
  Sender: FDA-Public Use
  Company Number: US-ASTRAZENECA-2011SE48131

PATIENT
  Sex: Female
  Weight: 47.6 kg

DRUGS (2)
  1. RISPERDAL [Concomitant]
  2. SEROQUEL XR [Suspect]
     Route: 048

REACTIONS (12)
  - HYPOAESTHESIA [None]
  - DIARRHOEA [None]
  - PSYCHOMOTOR HYPERACTIVITY [None]
  - DEPRESSION [None]
  - BACK PAIN [None]
  - VOMITING [None]
  - BREAST CANCER [None]
  - HYPERTENSION [None]
  - MUCOSAL INFLAMMATION [None]
  - AGGRESSION [None]
  - WEIGHT DECREASED [None]
  - CONFUSIONAL STATE [None]
